FAERS Safety Report 21603725 (Version 3)
Quarter: 2022Q4

REPORT INFORMATION
  Report Type: Spontaneous
  Country: US (occurrence: US)
  Receive Date: 20221116
  Receipt Date: 20221223
  Transmission Date: 20230112
  Serious: No
  Sender: FDA-Public Use
  Company Number: US-Blueprint Medicines Corporation-568

PATIENT
  Sex: Male

DRUGS (3)
  1. AYVAKIT [Suspect]
     Active Substance: AVAPRITINIB
     Indication: Gastrointestinal stromal tumour
     Route: 065
     Dates: start: 20221019
  2. AYVAKIT [Suspect]
     Active Substance: AVAPRITINIB
     Route: 065
     Dates: start: 20221115
  3. AYVAKIT [Suspect]
     Active Substance: AVAPRITINIB
     Route: 065
     Dates: start: 20221019

REACTIONS (19)
  - Muscle spasms [Unknown]
  - Muscle tightness [Unknown]
  - Unevaluable event [Unknown]
  - Eye disorder [Unknown]
  - Muscular weakness [Unknown]
  - Pain in extremity [Unknown]
  - Pharyngeal swelling [Recovered/Resolved]
  - General physical condition abnormal [Unknown]
  - Feeling abnormal [Unknown]
  - Peripheral swelling [Unknown]
  - Swelling face [Recovered/Resolved]
  - Fatigue [Unknown]
  - Limb discomfort [Unknown]
  - Musculoskeletal disorder [Unknown]
  - Inflammation [Unknown]
  - Limb injury [Unknown]
  - Joint hyperextension [Unknown]
  - Product dose omission issue [Unknown]
  - Stress [Unknown]
